FAERS Safety Report 22283437 (Version 5)
Quarter: 2024Q1

REPORT INFORMATION
  Report Type: Spontaneous
  Country: US (occurrence: US)
  Receive Date: 20230504
  Receipt Date: 20240319
  Transmission Date: 20240410
  Serious: No
  Sender: FDA-Public Use
  Company Number: US-SA-SAC20230501001491

PATIENT
  Age: 42 Year
  Sex: Female

DRUGS (2)
  1. DUPIXENT [Suspect]
     Active Substance: DUPILUMAB
     Indication: Asthma
     Dosage: 300 MG, QOW
     Route: 058
     Dates: start: 202211
  2. DUPIXENT [Suspect]
     Active Substance: DUPILUMAB
     Indication: Nasal polyps

REACTIONS (11)
  - Pain [Unknown]
  - Nausea [Recovering/Resolving]
  - Headache [Recovering/Resolving]
  - Malaise [Recovering/Resolving]
  - Condition aggravated [Recovering/Resolving]
  - Muscle strain [Unknown]
  - Asthenia [Recovering/Resolving]
  - Vision blurred [Recovering/Resolving]
  - Condition aggravated [Recovering/Resolving]
  - Arthralgia [Recovering/Resolving]
  - Inappropriate schedule of product administration [Unknown]

NARRATIVE: CASE EVENT DATE: 20230101
